FAERS Safety Report 6937620-6 (Version None)
Quarter: 2010Q3

REPORT INFORMATION
  Report Type: 
  Country: None (occurrence: None)
  Receive Date: 20100823
  Receipt Date: 20100823
  Transmission Date: 20110219
  Serious: Yes (Other)
  Sender: FDA-Public Use
  Company Number: None

PATIENT
  Age: 49 Year
  Sex: Female
  Weight: 104.3273 kg

DRUGS (3)
  1. LYRICA [Suspect]
     Indication: COMPLEX REGIONAL PAIN SYNDROME
     Dosage: 1 TWICE A DAY PO
     Route: 048
     Dates: start: 20100501, end: 20100822
  2. LYRICA [Suspect]
     Indication: INJURY
     Dosage: 1 TWICE A DAY PO
     Route: 048
     Dates: start: 20100501, end: 20100822
  3. LYRICA [Suspect]
     Indication: NEURALGIA
     Dosage: 1 TWICE A DAY PO
     Route: 048
     Dates: start: 20100501, end: 20100822

REACTIONS (2)
  - NO THERAPEUTIC RESPONSE [None]
  - OEDEMA PERIPHERAL [None]
